FAERS Safety Report 22589254 (Version 1)
Quarter: 2023Q2

REPORT INFORMATION
  Report Type: Spontaneous
  Country: FR (occurrence: FR)
  Receive Date: 20230612
  Receipt Date: 20230612
  Transmission Date: 20230721
  Serious: Yes (Hospitalization)
  Sender: FDA-Public Use
  Company Number: None

PATIENT
  Age: 31 Year
  Sex: Male
  Weight: 62.1 kg

DRUGS (1)
  1. AZITHROMYCIN [Suspect]
     Active Substance: AZITHROMYCIN
     Indication: Food poisoning
     Dosage: 500 MILLIGRAM, QD, 250 MG TWICE A DAY FOR 3 DAYS
     Route: 048
     Dates: start: 20230116, end: 20230119

REACTIONS (2)
  - Hepatic failure [Recovering/Resolving]
  - Hepatitis acute [Recovering/Resolving]

NARRATIVE: CASE EVENT DATE: 20230124
